FAERS Safety Report 7020554-9 (Version None)
Quarter: 2010Q3

REPORT INFORMATION
  Report Type: 
  Country: None (occurrence: None)
  Receive Date: 20100929
  Receipt Date: 20100925
  Transmission Date: 20110219
  Serious: Yes (Other)
  Sender: FDA-Public Use
  Company Number: A0883415A

PATIENT
  Sex: Male

DRUGS (1)
  1. NICORETTE MINIS MINT 2 MG [Suspect]
     Indication: SMOKING CESSATION THERAPY
     Route: 002

REACTIONS (2)
  - GASTROINTESTINAL HAEMORRHAGE [None]
  - MUCOUS STOOLS [None]
